FAERS Safety Report 7799513-4 (Version None)
Quarter: 2011Q4

REPORT INFORMATION
  Report Type: 
  Country: None (occurrence: None)
  Receive Date: 20111006
  Receipt Date: 20111005
  Transmission Date: 20120403
  Serious: Yes (Other)
  Sender: FDA-Public Use
  Company Number: JP-PFIZER INC-2011002081

PATIENT
  Age: 40 Year
  Sex: Male

DRUGS (24)
  1. METHOTREXATE SODIUM [Suspect]
     Indication: IMMUNODEFICIENCY
  2. METHOTREXATE [Suspect]
     Indication: HODGKIN'S DISEASE
  3. CYCLOSPORINE [Suspect]
     Indication: IMMUNODEFICIENCY
  4. PREDNISONE [Suspect]
     Indication: HODGKIN'S DISEASE
  5. PROCARBAZINE HYDROCHLORIDE [Suspect]
     Indication: IMMUNODEFICIENCY
  6. PROCARBAZINE HYDROCHLORIDE [Suspect]
     Indication: HODGKIN'S DISEASE
  7. ETOPOSIDE [Suspect]
     Indication: IMMUNODEFICIENCY
  8. MUSTARGEN [Suspect]
     Indication: DIFFUSE LARGE B-CELL LYMPHOMA
  9. MUSTARGEN [Suspect]
     Indication: HODGKIN'S DISEASE
  10. ADRIAMYCIN PFS [Suspect]
     Indication: HODGKIN'S DISEASE
  11. MUSTARGEN [Suspect]
     Indication: IMMUNODEFICIENCY
  12. METHOTREXATE SODIUM [Suspect]
     Indication: DIFFUSE LARGE B-CELL LYMPHOMA
  13. CYCLOSPORINE [Suspect]
     Indication: HODGKIN'S DISEASE
  14. ONCOVIN [Suspect]
     Indication: DIFFUSE LARGE B-CELL LYMPHOMA
  15. PREDNISONE [Suspect]
     Indication: IMMUNODEFICIENCY
  16. ADRIAMYCIN PFS [Suspect]
     Indication: IMMUNODEFICIENCY
  17. ETOPOSIDE [Suspect]
     Indication: DIFFUSE LARGE B-CELL LYMPHOMA
  18. ONCOVIN [Suspect]
     Indication: IMMUNODEFICIENCY
  19. CYCLOPHOSPHAMIDE [Suspect]
     Indication: DIFFUSE LARGE B-CELL LYMPHOMA
  20. ONCOVIN [Suspect]
     Indication: HODGKIN'S DISEASE
  21. ADRIAMYCIN PFS [Suspect]
     Indication: DIFFUSE LARGE B-CELL LYMPHOMA
  22. PROCARBAZINE HYDROCHLORIDE [Suspect]
     Indication: DIFFUSE LARGE B-CELL LYMPHOMA
  23. ETOPOSIDE [Suspect]
     Indication: HODGKIN'S DISEASE
  24. PREDNISONE [Suspect]
     Indication: DIFFUSE LARGE B-CELL LYMPHOMA

REACTIONS (3)
  - MUCOUS MEMBRANE DISORDER [None]
  - RENAL DISORDER [None]
  - BONE MARROW FAILURE [None]
